FAERS Safety Report 5484714-0 (Version None)
Quarter: 2007Q4

REPORT INFORMATION
  Report Type: 
  Country: None (occurrence: None)
  Receive Date: 20071010
  Receipt Date: 20071003
  Transmission Date: 20080405
  Serious: Yes (Hospitalization)
  Sender: FDA-Public Use
  Company Number: 018602

PATIENT
  Age: 30 Year
  Sex: Female

DRUGS (3)
  1. APRI(DESOGESTREL, ETHINYL ESTRADIOL) TABLET, 0.15/0.03MG [Suspect]
     Dosage: 1 TABLET, QD, ORAL
     Route: 048
     Dates: start: 20070201, end: 20070917
  2. PRILOSEC [Suspect]
  3. ALLEGRA-D (FEXOFENADINE) [Concomitant]

REACTIONS (1)
  - ANAPHYLACTIC REACTION [None]
